FAERS Safety Report 17285033 (Version 6)
Quarter: 2021Q1

REPORT INFORMATION
  Report Type: Report from Study
  Country: FR (occurrence: FR)
  Receive Date: 20200117
  Receipt Date: 20210309
  Transmission Date: 20210419
  Serious: Yes (Hospitalization)
  Sender: FDA-Public Use
  Company Number: FR-JNJFOC-20191125249

PATIENT
  Age: 65 Year
  Sex: Male
  Weight: 79 kg

DRUGS (16)
  1. SPASFON [PHLOROGLUCINOL;TRIMETHYLPHLOROGLUCINOL] [Concomitant]
     Active Substance: PHLOROGLUCINOL\1,3,5-TRIMETHOXYBENZENE
     Indication: ABDOMINAL PAIN
     Route: 048
     Dates: start: 20191001
  2. PRIMPERAN [Concomitant]
     Active Substance: METOCLOPRAMIDE HYDROCHLORIDE
     Indication: PROPHYLAXIS OF NAUSEA AND VOMITING
     Route: 048
     Dates: start: 20190926
  3. POTASSIUM CHLORIDE;SODIUM BICARBONATE;SODIUM CHLORIDE [Concomitant]
     Indication: CONSTIPATION PROPHYLAXIS
     Route: 048
     Dates: start: 20190926
  4. ACTISKENAN [Concomitant]
     Active Substance: MORPHINE SULFATE
     Indication: BACK PAIN
     Route: 048
     Dates: start: 20190928
  5. LENALIDOMIDE [Suspect]
     Active Substance: LENALIDOMIDE
     Indication: PLASMA CELL MYELOMA
     Dosage: WITH THE MOST RECENT DOSE RECEIVED ON 09?DEC?2019
     Route: 048
     Dates: start: 20191025
  6. ASPEGIC [ACETYLSALICYLATE LYSINE] [Concomitant]
     Active Substance: ASPIRIN DL-LYSINE
     Indication: THROMBOSIS PROPHYLAXIS
     Route: 048
     Dates: start: 20191115
  7. SPECIAFOLDINE [Concomitant]
     Active Substance: FOLIC ACID
     Indication: ANAEMIA PROPHYLAXIS
     Route: 048
     Dates: start: 20190926
  8. ZOPHREN [ONDANSETRON] [Concomitant]
     Active Substance: ONDANSETRON
     Indication: GASTROINTESTINAL DISORDER THERAPY
     Route: 042
     Dates: start: 20191108, end: 20191108
  9. VELCADE [Suspect]
     Active Substance: BORTEZOMIB
     Indication: PLASMA CELL MYELOMA
     Route: 058
     Dates: start: 20191025, end: 20191205
  10. DEXAMETHASONE. [Suspect]
     Active Substance: DEXAMETHASONE
     Indication: PLASMA CELL MYELOMA
     Route: 048
     Dates: start: 20191025, end: 20191209
  11. XANAX [Concomitant]
     Active Substance: ALPRAZOLAM
     Indication: PROPHYLAXIS
     Route: 048
     Dates: start: 20191209
  12. AMLODIPINE [Concomitant]
     Active Substance: AMLODIPINE BESYLATE
     Indication: HYPERTENSION
     Route: 048
     Dates: start: 2019
  13. SKENAN [Concomitant]
     Active Substance: MORPHINE SULFATE
     Indication: BACK PAIN
     Route: 048
     Dates: start: 20190928
  14. DARATUMUMAB [Suspect]
     Active Substance: DARATUMUMAB
     Indication: PLASMA CELL MYELOMA
     Dosage: WITH THE MOST RECENT DOSE RECEIVED ON 09?DEC?2019
     Route: 058
     Dates: start: 20191025
  15. LOVENOX [Concomitant]
     Active Substance: ENOXAPARIN SODIUM
     Indication: THROMBOSIS PROPHYLAXIS
     Route: 058
     Dates: start: 20191111, end: 20191114
  16. OXYCODONE [Concomitant]
     Active Substance: OXYCODONE
     Indication: BACK PAIN
     Dosage: DOSE = 10 UNITS OTHER, FREQUENCY = OTHER
     Route: 042
     Dates: start: 20191210, end: 20191227

REACTIONS (3)
  - Mucormycosis [Recovered/Resolved]
  - Constipation [Recovered/Resolved]
  - Back pain [Recovered/Resolved]

NARRATIVE: CASE EVENT DATE: 20191111
